FAERS Safety Report 6634891-0 (Version None)
Quarter: 2010Q1

REPORT INFORMATION
  Report Type: 
  Country: None (occurrence: None)
  Receive Date: 20100311
  Receipt Date: 20100311
  Transmission Date: 20100710
  Serious: Yes (Hospitalization)
  Sender: FDA-Public Use
  Company Number: None

PATIENT
  Sex: Male
  Weight: 114.76 kg

DRUGS (1)
  1. DASATINIB [Suspect]

REACTIONS (2)
  - DRUG INEFFECTIVE [None]
  - HEADACHE [None]
